FAERS Safety Report 4401260-3 (Version None)
Quarter: 2004Q3

REPORT INFORMATION
  Report Type: 
  Country: None (occurrence: None)
  Receive Date: 20040907
  Receipt Date: 20040123
  Transmission Date: 20050211
  Serious: Yes (Other)
  Sender: FDA-Public Use
  Company Number: US-BRISTOL-MYERS SQUIBB COMPANY-12486643

PATIENT
  Sex: Male

DRUGS (3)
  1. COUMADIN [Suspect]
     Route: 048
  2. PLAVIX [Suspect]
     Dosage: NO LONGER COMBINING CLOPIDOGREL AND ASPIRIN.
     Route: 048
  3. ASPIRIN [Suspect]
     Dosage: NO LONGER COMBINING CLOPIDOGREL AND ASPIRIN.
     Route: 048

REACTIONS (2)
  - EPISTAXIS [None]
  - HAEMOPTYSIS [None]
